FAERS Safety Report 18713585 (Version 1)
Quarter: 2021Q1

REPORT INFORMATION
  Report Type: Spontaneous
  Country: US (occurrence: US)
  Receive Date: 20210107
  Receipt Date: 20210107
  Transmission Date: 20210419
  Serious: Yes (Death)
  Sender: FDA-Public Use
  Company Number: US-BAYER-2021-000317

PATIENT
  Age: 69 Year
  Sex: Female

DRUGS (3)
  1. NARCOTINE [Suspect]
     Active Substance: NOSCAPINE
  2. ALCOHOL. [Suspect]
     Active Substance: ALCOHOL
  3. PARACETAMOL [Suspect]
     Active Substance: ACETAMINOPHEN

REACTIONS (2)
  - Toxicity to various agents [Fatal]
  - Drug abuse [Fatal]
